FAERS Safety Report 18226421 (Version 2)
Quarter: 2020Q4

REPORT INFORMATION
  Report Type: Spontaneous
  Country: US (occurrence: US)
  Receive Date: 20200903
  Receipt Date: 20201029
  Transmission Date: 20210113
  Serious: No
  Sender: FDA-Public Use
  Company Number: US-009507513-2008USA014432

PATIENT
  Sex: Female

DRUGS (1)
  1. NEXPLANON [Suspect]
     Active Substance: ETONOGESTREL
     Indication: CONTRACEPTION
     Dosage: 1 IMPLANT (68 MG), ONE TIME
     Route: 059
     Dates: start: 20180912

REACTIONS (4)
  - Menorrhagia [Unknown]
  - Menstruation irregular [Unknown]
  - Pain [Unknown]
  - Uterine leiomyoma [Unknown]
